FAERS Safety Report 17273536 (Version 1)
Quarter: 2020Q1

REPORT INFORMATION
  Report Type: Spontaneous
  Country: US (occurrence: US)
  Receive Date: 20200115
  Receipt Date: 20200115
  Transmission Date: 20200409
  Serious: Yes (Hospitalization)
  Sender: FDA-Public Use
  Company Number: None

PATIENT
  Sex: Female

DRUGS (3)
  1. MYCOPHENOLATE [Suspect]
     Active Substance: MYCOPHENOLIC ACID
     Indication: RENAL TRANSPLANT
     Route: 048
     Dates: start: 20140902
  2. GENGRAF [Concomitant]
     Active Substance: CYCLOSPORINE
     Dates: start: 20160831
  3. GENGRAF 100MG [Concomitant]
     Dates: start: 20140618

REACTIONS (1)
  - Optic ischaemic neuropathy [None]
